FAERS Safety Report 25901073 (Version 2)
Quarter: 2025Q4

REPORT INFORMATION
  Report Type: Spontaneous
  Country: IN (occurrence: IN)
  Receive Date: 20251009
  Receipt Date: 20251105
  Transmission Date: 20260117
  Serious: Yes (Other)
  Sender: RANBAXY
  Company Number: IN-SUN PHARMACEUTICAL INDUSTRIES INC-2025R1-530546

PATIENT
  Age: 35 Year
  Sex: Female
  Weight: 55 kg

DRUGS (3)
  1. IVERMECTIN [Suspect]
     Active Substance: IVERMECTIN
     Indication: Infection
     Dosage: 12 MG SINGLE DOSE CO-ADMINISTRATION ONLY ONCE
     Route: 065
  2. ALBENDAZOLE [Suspect]
     Active Substance: ALBENDAZOLE
     Indication: Infection
     Dosage: 400 MILLIGRAM, SINGLE DOSE CO-ADMINISTRATION ONLY ONCE
     Route: 048
  3. DIETHYLCARBAMAZINE [Suspect]
     Active Substance: DIETHYLCARBAMAZINE
     Indication: Infection
     Dosage: 300MG, SINGLE DOSE CO-ADMINISTRATION ONLY ONCE
     Route: 048

REACTIONS (1)
  - Lymphangitis [Recovered/Resolved]
